FAERS Safety Report 17467345 (Version 1)
Quarter: 2020Q1

REPORT INFORMATION
  Report Type: Spontaneous
  Country: US (occurrence: US)
  Receive Date: 20200227
  Receipt Date: 20200227
  Transmission Date: 20200409
  Serious: No
  Sender: FDA-Public Use
  Company Number: US-PFIZER INC-2020085151

PATIENT
  Age: 83 Year
  Sex: Male

DRUGS (2)
  1. LATANOPROST. [Suspect]
     Active Substance: LATANOPROST
     Indication: EYE DISORDER
     Dosage: 2 GTT, DAILY [1 DROP IN EACH EYE ONCE DAILY]
     Route: 047
     Dates: start: 20200224
  2. LATANOPROST. [Suspect]
     Active Substance: LATANOPROST
     Dosage: UNK

REACTIONS (2)
  - Product quality issue [Unknown]
  - Poor quality product administered [Unknown]

NARRATIVE: CASE EVENT DATE: 20200224
